FAERS Safety Report 4391318-X (Version None)
Quarter: 2004Q2

REPORT INFORMATION
  Report Type: 
  Country: None (occurrence: None)
  Receive Date: 20040621
  Receipt Date: 20031104
  Transmission Date: 20050107
  Serious: Yes (Hospitalization, Other)
  Sender: FDA-Public Use
  Company Number: USA-2003-0010677

PATIENT
  Sex: Male

DRUGS (2)
  1. OXYCODONE HCL [Suspect]
  2. PERCOCET [Suspect]

REACTIONS (3)
  - ABDOMINAL PAIN [None]
  - AFFECT LABILITY [None]
  - DRUG DEPENDENCE [None]
